FAERS Safety Report 23180763 (Version 1)
Quarter: 2023Q4

REPORT INFORMATION
  Report Type: Report from Study
  Country: CA (occurrence: CA)
  Receive Date: 20231114
  Receipt Date: 20231114
  Transmission Date: 20240110
  Serious: Yes (Other)
  Sender: FDA-Public Use
  Company Number: CA-BAYER-2023A142740

PATIENT
  Sex: Female

DRUGS (1)
  1. EYLEA [Suspect]
     Active Substance: AFLIBERCEPT
     Indication: Diabetic retinal oedema
     Dosage: 2MG, ONCE; SOLUTION FOR INJECTION; 40MG/ML
     Route: 031
     Dates: start: 20230210

REACTIONS (2)
  - Eye haemorrhage [Unknown]
  - Eye operation [Unknown]

NARRATIVE: CASE EVENT DATE: 20230826
